FAERS Safety Report 5145690-3 (Version None)
Quarter: 2006Q4

REPORT INFORMATION
  Report Type: 
  Country: None (occurrence: None)
  Receive Date: 20061102
  Receipt Date: 20061023
  Transmission Date: 20070319
  Serious: Yes (Disabling)
  Sender: FDA-Public Use
  Company Number: 06H-056-0310893-00

PATIENT
  Age: 33 Year
  Sex: Male

DRUGS (14)
  1. VANCOMYCIN HYDROCHLORIDE [Suspect]
     Indication: ANTI-INFECTIVE THERAPY
  2. THIRD-GENERATION CEPHALOSPHORINS (CEPHALOSPORINS AND RELATED SUBSTANCE [Suspect]
     Indication: LUNG INFECTION
  3. BACTRIM [Suspect]
     Indication: LUNG INFECTION
  4. QUINOLONES (QUINOLONE VASODILATORS) [Suspect]
     Indication: LUNG INFECTION
  5. COLIMYCIN (COLISTIN MESILATE SODIUM) [Suspect]
     Indication: LUNG INFECTION
  6. PIPERACILLIN TAZOBACTAM (PIP/TAZO) [Suspect]
     Indication: ANTI-INFECTIVE THERAPY
  7. CIPROFLOXACIN [Suspect]
     Indication: ANTI-INFECTIVE THERAPY
  8. VORICONAZOLE (VORICONAZOLE) [Suspect]
     Indication: ANTI-INFECTIVE THERAPY
  9. ANTITHYMOCYTE GLOBULINS (ANTITHYMOCYTE IMMUNOGLOBULIN) [Concomitant]
  10. STEROIDS (STEROID ANTIBACTERIALS) [Concomitant]
  11. MYCOPHENOLATE MOFETIL [Concomitant]
  12. TACROLIMUS (TACROLIMUS) [Concomitant]
  13. IMMUNOGLOBULIN (IVIG) (IMMUNOGLOBULINS) [Concomitant]
  14. ASCORBIC ACID [Concomitant]

REACTIONS (4)
  - DIALYSIS [None]
  - HYPEROXALURIA [None]
  - HYPERTENSION [None]
  - RENAL FAILURE ACUTE [None]
